FAERS Safety Report 9386786 (Version 2)
Quarter: 2013Q3

REPORT INFORMATION
  Report Type: Spontaneous
  Country: US (occurrence: US)
  Receive Date: 20130708
  Receipt Date: 20130816
  Transmission Date: 20140515
  Serious: No
  Sender: FDA-Public Use
  Company Number: US-PFIZER INC-2013199972

PATIENT
  Age: 58 Year
  Sex: Female
  Weight: 69.39 kg

DRUGS (11)
  1. LYRICA [Suspect]
     Indication: NEURALGIA
     Dosage: 150 MG, 2X/DAY (150MG IN MORNING AND 150MG IN NIGHT)
     Dates: start: 2006
  2. LYRICA [Suspect]
     Indication: RESTLESS LEGS SYNDROME
     Dosage: 75MG IN MORNING AND 150MG IN NIGHT
     Dates: end: 201301
  3. LYRICA [Suspect]
     Dosage: 75MG AM, 50 MG PM
     Route: 048
  4. MIRAPEX [Suspect]
     Indication: NEURALGIA
     Dosage: 0.5 MG, 1X/DAY
  5. MIRAPEX [Suspect]
     Indication: FIBROMYALGIA
     Dosage: 0.25 MG, 1X/DAY
  6. SIMVASTATIN [Concomitant]
     Indication: BLOOD CHOLESTEROL INCREASED
     Dosage: 40 MG, 1X/DAY
  7. VITAMIN B12 [Concomitant]
     Indication: SUPPLEMENTATION THERAPY
     Dosage: 500 MG, 1X/DAY
  8. VITAMIN B6 [Concomitant]
     Indication: SUPPLEMENTATION THERAPY
     Dosage: 100 MG, 1X/DAY
  9. VITAMIN E [Concomitant]
     Indication: SUPPLEMENTATION THERAPY
     Dosage: 200 MG, 3X/DAY
  10. CALCIUM [Concomitant]
     Indication: SUPPLEMENTATION THERAPY
     Dosage: 600 MG, 2X/DAY
  11. PRILOSEC [Concomitant]
     Indication: GASTRIC DISORDER
     Dosage: 20 MG, 2X/DAY

REACTIONS (5)
  - Somnolence [Recovered/Resolved]
  - Fatigue [Unknown]
  - Headache [Unknown]
  - Pain [Unknown]
  - Drug prescribing error [Unknown]
